FAERS Safety Report 22381681 (Version 1)
Quarter: 2023Q2

REPORT INFORMATION
  Report Type: Spontaneous
  Country: US (occurrence: US)
  Receive Date: 20230530
  Receipt Date: 20230530
  Transmission Date: 20230722
  Serious: Yes (Other)
  Sender: FDA-Public Use
  Company Number: US-STRIDES ARCOLAB LIMITED-2023SP003897

PATIENT
  Age: 42 Year
  Sex: Male

DRUGS (16)
  1. PREDNISOLONE [Suspect]
     Active Substance: PREDNISOLONE
     Indication: Immune thrombocytopenia
     Dosage: 60 MILLIGRAM (PER DAY)
     Route: 065
     Dates: start: 202001, end: 202002
  2. PREDNISOLONE [Suspect]
     Active Substance: PREDNISOLONE
     Dosage: 30 MILLIGRAM (PER DAY)
     Route: 065
     Dates: start: 202002, end: 202004
  3. PREDNISOLONE [Suspect]
     Active Substance: PREDNISOLONE
     Dosage: UNK  (PER DAY)(PREDNISONE 50-60MG DAILY)
     Route: 065
     Dates: start: 202101
  4. PREDNISOLONE [Suspect]
     Active Substance: PREDNISOLONE
     Dosage: 60 MILLIGRAM (PER DAY)
     Route: 065
     Dates: start: 2021
  5. MYCOPHENOLATE MOFETIL [Suspect]
     Active Substance: MYCOPHENOLATE MOFETIL
     Indication: Immune thrombocytopenia
     Dosage: UNK
     Route: 065
  6. ROMIPLOSTIM [Suspect]
     Active Substance: ROMIPLOSTIM
     Indication: Immune thrombocytopenia
     Dosage: 3 MICROGRAM/KILOGRAM, ONCE A WEEK
     Route: 065
     Dates: start: 202001, end: 202002
  7. ROMIPLOSTIM [Suspect]
     Active Substance: ROMIPLOSTIM
     Dosage: UNK (PER WEEK)
     Route: 065
     Dates: start: 202002, end: 202004
  8. ROMIPLOSTIM [Suspect]
     Active Substance: ROMIPLOSTIM
     Dosage: UNK (ROMIPLOSTIM 1-3 MICROG WEEKLY)
     Route: 065
     Dates: start: 202006, end: 202008
  9. ROMIPLOSTIM [Suspect]
     Active Substance: ROMIPLOSTIM
     Dosage: 1 MICROGRAM/KILOGRAM (PER WEEK)
     Route: 065
     Dates: start: 202101
  10. ROMIPLOSTIM [Suspect]
     Active Substance: ROMIPLOSTIM
     Dosage: 2 MICROGRAM/KILOGRAM, (PER WEEK)
     Route: 065
     Dates: start: 2021
  11. ELTROMBOPAG [Suspect]
     Active Substance: ELTROMBOPAG
     Indication: Immune thrombocytopenia
     Dosage: 50 MILLIGRAM (PER DAY)
     Route: 065
     Dates: start: 202008, end: 202010
  12. FOSTAMATINIB [Suspect]
     Active Substance: FOSTAMATINIB
     Indication: Immune thrombocytopenia
     Dosage: 100 MILLIGRAM, BID (FOR 30 DAYS)
     Route: 065
  13. FOSTAMATINIB [Suspect]
     Active Substance: FOSTAMATINIB
     Dosage: 150 MILLIGRAM, BID (FOR 20 DAYS)
     Route: 065
  14. AVATROMBOPAG [Suspect]
     Active Substance: AVATROMBOPAG
     Indication: Immune thrombocytopenia
     Dosage: 40 MILLIGRAM (PER DAY)
     Route: 065
  15. AVATROMBOPAG [Suspect]
     Active Substance: AVATROMBOPAG
     Dosage: UNK
     Route: 065
  16. RITUXIMAB [Suspect]
     Active Substance: RITUXIMAB
     Indication: Immune thrombocytopenia
     Dosage: 800 MILLIGRAM (FOUR DOSES OF RITUXIMAB 800MG WEEKLY)
     Route: 065
     Dates: start: 202003, end: 202004

REACTIONS (2)
  - Treatment failure [Unknown]
  - Off label use [Unknown]
